FAERS Safety Report 16246050 (Version 2)
Quarter: 2019Q2

REPORT INFORMATION
  Report Type: Not Available
  Country: US (occurrence: US)
  Receive Date: 20190426
  Receipt Date: 20190508
  Transmission Date: 20190711
  Serious: Yes (Hospitalization, Other)
  Sender: FDA-Public Use
  Company Number: US-NEUROCRINE BIOSCIENCES INC.-2019NBI00990

PATIENT
  Sex: Male

DRUGS (7)
  1. LAMICTAL [Concomitant]
     Active Substance: LAMOTRIGINE
     Indication: DEPRESSION
  2. LAMICTAL [Concomitant]
     Active Substance: LAMOTRIGINE
  3. INGREZZA [Suspect]
     Active Substance: VALBENAZINE
     Indication: TARDIVE DYSKINESIA
     Route: 048
     Dates: start: 20190123
  4. FLUVOXAMINE [Concomitant]
     Active Substance: FLUVOXAMINE
     Indication: DEPRESSION
     Dates: end: 20190404
  5. LAMICTAL [Concomitant]
     Active Substance: LAMOTRIGINE
  6. XANAX [Concomitant]
     Active Substance: ALPRAZOLAM
     Dates: end: 201903
  7. LAMICTAL [Concomitant]
     Active Substance: LAMOTRIGINE
     Dates: end: 20190312

REACTIONS (3)
  - Drug withdrawal syndrome [Recovering/Resolving]
  - Urinary tract infection [Recovered/Resolved]
  - Drug screen positive [Unknown]
